FAERS Safety Report 7337017-3 (Version None)
Quarter: 2011Q1

REPORT INFORMATION
  Report Type: 
  Country: None (occurrence: None)
  Receive Date: 20110308
  Receipt Date: 20110224
  Transmission Date: 20110831
  Serious: Yes (Hospitalization, Other)
  Sender: FDA-Public Use
  Company Number: US-BAYER-US-2006-020808

PATIENT
  Sex: Female

DRUGS (2)
  1. BETASERON [Suspect]
     Indication: RELAPSING-REMITTING MULTIPLE SCLEROSIS
     Route: 058
     Dates: start: 19991201
  2. BETASERON [Suspect]
     Indication: SECONDARY PROGRESSIVE MULTIPLE SCLEROSIS
     Dosage: 8 MIU, QOD
     Route: 058
     Dates: end: 20110219

REACTIONS (14)
  - TREMOR [None]
  - VOMITING [None]
  - NIPPLE EXUDATE BLOODY [None]
  - VISUAL IMPAIRMENT [None]
  - HEADACHE [None]
  - CHILLS [None]
  - NAUSEA [None]
  - BREAST MASS [None]
  - MIGRAINE [None]
  - PYREXIA [None]
  - HYDROCEPHALUS [None]
  - VERTIGO [None]
  - VISION BLURRED [None]
  - BRAIN STEM GLIOMA [None]
